FAERS Safety Report 16334301 (Version 4)
Quarter: 2019Q4

REPORT INFORMATION
  Report Type: Spontaneous
  Country: US (occurrence: US)
  Receive Date: 20190520
  Receipt Date: 20191122
  Transmission Date: 20200122
  Serious: Yes (Death)
  Sender: FDA-Public Use
  Company Number: US-ARRAY-2019-05431

PATIENT

DRUGS (12)
  1. MEKTOVI [Suspect]
     Active Substance: BINIMETINIB
     Indication: METASTASES TO LUNG
  2. MEKTOVI [Suspect]
     Active Substance: BINIMETINIB
     Indication: METASTASES TO CENTRAL NERVOUS SYSTEM
  3. BRAFTOVI [Suspect]
     Active Substance: ENCORAFENIB
     Indication: MALIGNANT MELANOMA
     Dosage: 450 MG, QD
     Route: 048
     Dates: start: 20190209
  4. NORCO [Concomitant]
     Active Substance: ACETAMINOPHEN\HYDROCODONE BITARTRATE
     Indication: PRODUCT USED FOR UNKNOWN INDICATION
  5. MEKTOVI [Suspect]
     Active Substance: BINIMETINIB
     Indication: MALIGNANT MELANOMA
     Dosage: 45 MG, BID
     Route: 048
     Dates: start: 20190209
  6. BRAFTOVI [Suspect]
     Active Substance: ENCORAFENIB
     Indication: BONE CANCER
  7. MORPHINE SULFATE. [Concomitant]
     Active Substance: MORPHINE SULFATE
     Indication: PRODUCT USED FOR UNKNOWN INDICATION
  8. IBUPROFEN. [Concomitant]
     Active Substance: IBUPROFEN
     Indication: PRODUCT USED FOR UNKNOWN INDICATION
  9. MEKTOVI [Suspect]
     Active Substance: BINIMETINIB
     Indication: METASTASIS
  10. BRAFTOVI [Suspect]
     Active Substance: ENCORAFENIB
     Indication: METASTASIS
  11. MEKTOVI [Suspect]
     Active Substance: BINIMETINIB
     Indication: METASTASES TO BONE
  12. BRAFTOVI [Suspect]
     Active Substance: ENCORAFENIB
     Indication: BRAIN CANCER METASTATIC

REACTIONS (8)
  - Death [Fatal]
  - Weight decreased [Unknown]
  - Chest wall tumour [Unknown]
  - Asthenia [Unknown]
  - Pyrexia [Recovered/Resolved]
  - Nausea [Unknown]
  - General physical health deterioration [Unknown]
  - Feeding disorder [Unknown]

NARRATIVE: CASE EVENT DATE: 2019
